FAERS Safety Report 21421975 (Version 7)
Quarter: 2025Q3

REPORT INFORMATION
  Report Type: Report from Study
  Country: CA (occurrence: CA)
  Receive Date: 20221007
  Receipt Date: 20250804
  Transmission Date: 20251020
  Serious: Yes (Other)
  Sender: TAKEDA
  Company Number: CA-TAKEDA-2022TUS070523

PATIENT
  Sex: Female

DRUGS (12)
  1. VEDOLIZUMAB [Suspect]
     Active Substance: VEDOLIZUMAB
     Indication: Colitis ulcerative
  2. VEDOLIZUMAB [Suspect]
     Active Substance: VEDOLIZUMAB
  3. VEDOLIZUMAB [Suspect]
     Active Substance: VEDOLIZUMAB
     Indication: Colitis ulcerative
     Dosage: 108 MILLIGRAM, Q2WEEKS
     Dates: start: 20221115
  4. LISINOPRIL [Concomitant]
     Active Substance: LISINOPRIL
  5. ATENOLOL [Concomitant]
     Active Substance: ATENOLOL
  6. DILTIAZEM [Concomitant]
     Active Substance: DILTIAZEM
  7. ASPIRIN [Concomitant]
     Active Substance: ASPIRIN
  8. CRESTOR [Concomitant]
     Active Substance: ROSUVASTATIN CALCIUM
  9. CHLORTHALIDONE [Concomitant]
     Active Substance: CHLORTHALIDONE
  10. INSULIN NOS [Concomitant]
     Active Substance: INSULIN NOS
  11. LUCENTIS [Concomitant]
     Active Substance: RANIBIZUMAB
     Dosage: UNK UNK, Q6WEEKS
  12. PENTASA [Concomitant]
     Active Substance: MESALAMINE
     Dosage: UNK UNK, BID

REACTIONS (3)
  - Colitis ulcerative [Unknown]
  - Frequent bowel movements [Unknown]
  - Pulmonary mass [Unknown]
